FAERS Safety Report 4876829-2 (Version None)
Quarter: 2006Q1

REPORT INFORMATION
  Report Type: 
  Country: None (occurrence: None)
  Receive Date: 20060110
  Receipt Date: 20060103
  Transmission Date: 20060701
  Serious: Yes (Other)
  Sender: FDA-Public Use
  Company Number: 2006AC00006

PATIENT
  Age: 18053 Day
  Sex: Female
  Weight: 55 kg

DRUGS (1)
  1. ANASTRAZOL [Suspect]
     Indication: BREAST CANCER
     Route: 048
     Dates: start: 20050620, end: 20051020

REACTIONS (2)
  - BLOOD TRIGLYCERIDES INCREASED [None]
  - TRANSAMINASES INCREASED [None]
